FAERS Safety Report 23341155 (Version 3)
Quarter: 2025Q3

REPORT INFORMATION
  Report Type: Report from Study
  Country: CA (occurrence: CA)
  Receive Date: 20231227
  Receipt Date: 20250909
  Transmission Date: 20251020
  Serious: Yes (Other)
  Sender: TAKEDA
  Company Number: CA-TAKEDA-2017TUS017013

PATIENT
  Sex: Male

DRUGS (5)
  1. VEDOLIZUMAB [Suspect]
     Active Substance: VEDOLIZUMAB
     Indication: Crohn^s disease
  2. VEDOLIZUMAB [Suspect]
     Active Substance: VEDOLIZUMAB
     Dosage: 300 MILLIGRAM, Q6WEEKS
     Dates: start: 20171003
  3. APIXABAN [Concomitant]
     Active Substance: APIXABAN
     Indication: Deep vein thrombosis
     Dosage: 5 MILLIGRAM, BID
  4. HUMIRA [Concomitant]
     Active Substance: ADALIMUMAB
  5. Salofalk [Concomitant]
     Dosage: UNK UNK, QD

REACTIONS (4)
  - Crohn^s disease [Not Recovered/Not Resolved]
  - Anal fissure [Recovering/Resolving]
  - Gastrointestinal polyp [Unknown]
  - Off label use [Unknown]

NARRATIVE: CASE EVENT DATE: 20170101
